FAERS Safety Report 9664176 (Version 1)
Quarter: 2013Q4

REPORT INFORMATION
  Report Type: Spontaneous
  Country: US (occurrence: None)
  Receive Date: 20131030
  Receipt Date: 20131030
  Transmission Date: 20140711
  Serious: No
  Sender: FDA-Public Use
  Company Number: None

PATIENT
  Sex: Male
  Weight: 93.44 kg

DRUGS (1)
  1. ESCITALOPRAM [Suspect]
     Indication: ANXIETY

REACTIONS (2)
  - Product substitution issue [None]
  - No therapeutic response [None]
